FAERS Safety Report 9267287 (Version 3)
Quarter: 2013Q3

REPORT INFORMATION
  Report Type: Report from Study
  Country: US (occurrence: US)
  Receive Date: 20130502
  Receipt Date: 20130703
  Transmission Date: 20140515
  Serious: Yes (Other)
  Sender: FDA-Public Use
  Company Number: US-ABBOTT-13P-163-1063686-00

PATIENT
  Age: 34 Year
  Sex: Female
  Weight: 75 kg

DRUGS (11)
  1. HUMIRA [Suspect]
     Indication: CROHN^S DISEASE
     Dates: start: 20130213, end: 20130213
  2. HUMIRA [Suspect]
     Dates: start: 20130227, end: 20130227
  3. HUMIRA [Suspect]
  4. HUMIRA [Suspect]
     Dates: start: 201110
  5. WELLBUTRIN [Concomitant]
     Indication: DEPRESSION
  6. WELLBUTRIN [Concomitant]
     Indication: ANXIETY
  7. SULFASALAZINE [Concomitant]
     Indication: CROHN^S DISEASE
  8. METFORMIN [Concomitant]
     Indication: INSULIN RESISTANCE
  9. FOLIC ACID [Concomitant]
     Indication: ANAEMIA
  10. OCELLA [Concomitant]
     Indication: PRODUCT USED FOR UNKNOWN INDICATION
     Dosage: DAILY
  11. BRIELLYN [Concomitant]
     Indication: PRODUCT USED FOR UNKNOWN INDICATION
     Dates: start: 20130407

REACTIONS (6)
  - Fistula [Recovering/Resolving]
  - Abscess [Recovering/Resolving]
  - Pain [Recovering/Resolving]
  - Nodule [Recovering/Resolving]
  - Feeling hot [Recovering/Resolving]
  - Purulent discharge [Recovering/Resolving]
